FAERS Safety Report 15987406 (Version 3)
Quarter: 2019Q3

REPORT INFORMATION
  Report Type: Spontaneous
  Country: US (occurrence: US)
  Receive Date: 20190220
  Receipt Date: 20190910
  Transmission Date: 20191004
  Serious: Yes (Death, Other)
  Sender: FDA-Public Use
  Company Number: US-PFIZER INC-2019076194

PATIENT
  Age: 39 Year
  Sex: Male

DRUGS (2)
  1. PROTONIX [Suspect]
     Active Substance: PANTOPRAZOLE SODIUM
     Indication: GASTROOESOPHAGEAL REFLUX DISEASE
     Dosage: 40 MG, DAILY
     Dates: start: 20130101, end: 20170606
  2. PRILOSEC OTC [Suspect]
     Active Substance: OMEPRAZOLE MAGNESIUM
     Indication: GASTROOESOPHAGEAL REFLUX DISEASE
     Dosage: 20 MG, DAILY
     Dates: end: 20170101

REACTIONS (3)
  - Acute kidney injury [Unknown]
  - Chronic kidney disease [Unknown]
  - End stage renal disease [Unknown]

NARRATIVE: CASE EVENT DATE: 2013
